FAERS Safety Report 4286950-8 (Version None)
Quarter: 2004Q1

REPORT INFORMATION
  Report Type: 
  Country: None (occurrence: None)
  Receive Date: 20040206
  Receipt Date: 20011029
  Transmission Date: 20041129
  Serious: No
  Sender: FDA-Public Use
  Company Number: WAES 01104867B1

PATIENT
  Age: 0 Day
  Sex: Female
  Weight: 5 kg

DRUGS (5)
  1. VENTOLIN [Concomitant]
     Dates: start: 20011006
  2. SINGULAIR [Suspect]
     Dates: start: 20011026, end: 20020614
  3. PROTONIX [Concomitant]
     Dates: start: 20010926
  4. SEREVENT [Concomitant]
     Dates: start: 20011026
  5. VITAMINS (UNSPECIFIED) [Concomitant]
     Dates: start: 20010926

REACTIONS (5)
  - CAESAREAN SECTION [None]
  - CEPHALO-PELVIC DISPROPORTION [None]
  - MACROSOMIA [None]
  - MATERNAL DRUGS AFFECTING FOETUS [None]
  - PREGNANCY [None]
